FAERS Safety Report 9160400 (Version 1)
Quarter: 2013Q1

REPORT INFORMATION
  Report Type: Spontaneous
  Country: BR (occurrence: BR)
  Receive Date: 20130313
  Receipt Date: 20130313
  Transmission Date: 20140127
  Serious: Yes (Death)
  Sender: FDA-Public Use
  Company Number: BR-PFIZER INC-2012210943

PATIENT
  Age: 72 Year
  Sex: Male

DRUGS (3)
  1. SUTENT [Suspect]
     Indication: RENAL CELL CARCINOMA
     Dosage: 50 MG, 1X/DAY, 4 WEEKS ON/2 WEEKS OFF
     Route: 048
     Dates: start: 20120820
  2. MAREVAN [Concomitant]
     Dosage: UNK, 1X/DAY
  3. MORPHINE [Concomitant]
     Dosage: 8 / 8 HOURS (3X/DAY)

REACTIONS (2)
  - Death [Fatal]
  - Pruritus [Unknown]
